FAERS Safety Report 10568007 (Version 1)
Quarter: 2014Q4

REPORT INFORMATION
  Report Type: Spontaneous
  Country: US (occurrence: None)
  Receive Date: 20141104
  Receipt Date: 20141104
  Transmission Date: 20150529
  Serious: Yes (Other)
  Sender: FDA-Public Use
  Company Number: KAD201410-001329

PATIENT
  Sex: Female

DRUGS (3)
  1. INCIVEK [Suspect]
     Active Substance: TELAPREVIR
     Dates: start: 201306, end: 201311
  2. RIBAVIRIN. [Suspect]
     Active Substance: RIBAVIRIN
     Dates: start: 201306, end: 201311
  3. INTERFERON (INTERFERON) (INTERFERON) [Concomitant]

REACTIONS (1)
  - Breast cancer [None]
